FAERS Safety Report 13760142 (Version 1)
Quarter: 2017Q3

REPORT INFORMATION
  Report Type: Spontaneous
  Country: US (occurrence: US)
  Receive Date: 20170717
  Receipt Date: 20170717
  Transmission Date: 20171127
  Serious: No
  Sender: FDA-Public Use
  Company Number: US-AMGEN-USASP2017099206

PATIENT
  Age: 24 Year
  Sex: Female

DRUGS (2)
  1. CORLANOR [Suspect]
     Active Substance: IVABRADINE HYDROCHLORIDE
     Indication: TACHYCARDIA
     Dosage: 5 MG, (ONE HALF TABLET TWICE DAILY)
     Route: 065
     Dates: start: 201705, end: 201706
  2. CORLANOR [Suspect]
     Active Substance: IVABRADINE HYDROCHLORIDE
     Indication: CHEST PAIN

REACTIONS (2)
  - Drug screen false positive [Unknown]
  - Off label use [Unknown]

NARRATIVE: CASE EVENT DATE: 20170627
